FAERS Safety Report 12391389 (Version 1)
Quarter: 2016Q2

REPORT INFORMATION
  Report Type: Spontaneous
  Country: US (occurrence: US)
  Receive Date: 20160520
  Receipt Date: 20160520
  Transmission Date: 20160815
  Serious: Yes (Death, Hospitalization)
  Sender: FDA-Public Use
  Company Number: US-ASTRAZENECA-2016SE53817

PATIENT
  Age: 488 Day
  Sex: Male

DRUGS (2)
  1. SYNAGIS [Suspect]
     Active Substance: PALIVIZUMAB
     Route: 030
     Dates: start: 20141125
  2. SYNAGIS [Suspect]
     Active Substance: PALIVIZUMAB
     Route: 030
     Dates: start: 20150101

REACTIONS (15)
  - Pneumonia [Unknown]
  - Heart rate increased [Unknown]
  - Diabetic ketoacidosis [Unknown]
  - Electrolyte imbalance [Unknown]
  - Pulseless electrical activity [Unknown]
  - Cardio-respiratory arrest [Fatal]
  - Hypotension [Unknown]
  - Hypovolaemic shock [Unknown]
  - Neuromyopathy [Unknown]
  - Upper respiratory tract infection [Unknown]
  - Influenza [Unknown]
  - Tracheitis [Unknown]
  - Chronic respiratory failure [Unknown]
  - Bronchitis [Unknown]
  - Febrile convulsion [Unknown]

NARRATIVE: CASE EVENT DATE: 20141209
